FAERS Safety Report 20996478 (Version 1)
Quarter: 2022Q2

REPORT INFORMATION
  Report Type: Spontaneous
  Country: TW (occurrence: TW)
  Receive Date: 20220623
  Receipt Date: 20220623
  Transmission Date: 20220720
  Serious: Yes (Other)
  Sender: FDA-Public Use
  Company Number: TW-CADILA HEALTHCARE LIMITED-TW-ZYDUS-079617

PATIENT

DRUGS (2)
  1. FLUCONAZOLE [Interacting]
     Active Substance: FLUCONAZOLE
     Indication: Tinea capitis
     Dosage: 300 MILLIGRAM, QD
     Route: 048
  2. BIPERIDEN [Interacting]
     Active Substance: BIPERIDEN
     Indication: Parkinsonism
     Dosage: 4 MILLIGRAM, QD
     Route: 065

REACTIONS (2)
  - Delirium [Recovered/Resolved]
  - Drug interaction [Unknown]
